FAERS Safety Report 23103627 (Version 3)
Quarter: 2023Q4

REPORT INFORMATION
  Report Type: Report from Study
  Country: US (occurrence: US)
  Receive Date: 20231025
  Receipt Date: 20231030
  Transmission Date: 20240109
  Serious: No
  Sender: FDA-Public Use
  Company Number: US-002147023-NVSC2023US225748

PATIENT
  Sex: Male

DRUGS (1)
  1. COSENTYX [Suspect]
     Active Substance: SECUKINUMAB
     Indication: Psoriasis
     Dosage: UNK
     Route: 065

REACTIONS (20)
  - Psoriasis [Unknown]
  - Pruritus [Unknown]
  - Skin exfoliation [Unknown]
  - Erythema [Unknown]
  - Blood potassium increased [Unknown]
  - Herpes zoster [Unknown]
  - Blister [Unknown]
  - Rash erythematous [Unknown]
  - Macule [Unknown]
  - Lentigo [Unknown]
  - Seborrhoeic keratosis [Unknown]
  - Skin papilloma [Unknown]
  - Papule [Unknown]
  - Pseudocyst [Unknown]
  - Haemangioma [Unknown]
  - Actinic keratosis [Unknown]
  - Laboratory test abnormal [Unknown]
  - Insomnia [Unknown]
  - Melanocytic naevus [Unknown]
  - Therapeutic product effect incomplete [Unknown]
